FAERS Safety Report 11944644 (Version 4)
Quarter: 2016Q2

REPORT INFORMATION
  Report Type: Report from Study
  Country: DE (occurrence: DE)
  Receive Date: 20160125
  Receipt Date: 20160502
  Transmission Date: 20160815
  Serious: Yes (Death, Other)
  Sender: FDA-Public Use
  Company Number: DE-BRISTOL-MYERS SQUIBB COMPANY-BMS-2016-003942

PATIENT
  Age: 86 Year
  Sex: Male
  Weight: 110 kg

DRUGS (1)
  1. APIXABAN [Suspect]
     Active Substance: APIXABAN
     Indication: CEREBROVASCULAR ACCIDENT PROPHYLAXIS
     Dosage: 5 MG, QD
     Route: 048
     Dates: start: 20130411, end: 20150916

REACTIONS (4)
  - Death [Fatal]
  - Cerebrovascular accident [Unknown]
  - Pulmonary embolism [Unknown]
  - Cardiac failure [Unknown]

NARRATIVE: CASE EVENT DATE: 20151007
